FAERS Safety Report 6496330-2 (Version None)
Quarter: 2009Q4

REPORT INFORMATION
  Report Type: 
  Country: None (occurrence: None)
  Receive Date: 20091209
  Receipt Date: 20091125
  Transmission Date: 20100525
  Serious: Yes (Hospitalization)
  Sender: FDA-Public Use
  Company Number: 1000010552

PATIENT
  Sex: Male

DRUGS (7)
  1. CITALOPRAM HYDROBROMIDE [Suspect]
     Indication: DEPRESSION
     Dosage: 20 MG (20 MG, 1 IN1 D), ORAL
     Route: 048
     Dates: start: 20070301, end: 20070301
  2. EPILIM CHRONOSPHERE [Suspect]
     Indication: CONVULSION
     Dosage: 600 MG (300 MG, 2 IN 1 D), ORAL
     Route: 048
     Dates: start: 20061101
  3. EPILIM CHRONOSPHERE [Suspect]
     Indication: CONVULSION
     Dosage: 100 MG (50 MG, 2 IN 1 D), ORAL
     Route: 048
  4. ASPIRIN [Concomitant]
  5. DIGOXIN [Concomitant]
  6. FRUSEMIDE [Concomitant]
  7. RAMIPRIL [Concomitant]

REACTIONS (2)
  - HYPONATRAEMIA [None]
  - MENTAL DISORDER [None]
